FAERS Safety Report 23444497 (Version 1)
Quarter: 2024Q1

REPORT INFORMATION
  Report Type: Spontaneous
  Country: US (occurrence: US)
  Receive Date: 20240125
  Receipt Date: 20240125
  Transmission Date: 20240409
  Serious: No
  Sender: FDA-Public Use
  Company Number: US-MYLANLABS-2024M1006109

PATIENT
  Sex: Female
  Weight: 83.46 kg

DRUGS (1)
  1. TYRVAYA [Suspect]
     Active Substance: VARENICLINE TARTRATE
     Indication: Dry eye
     Dosage: UNK, BID (ONE SPRAY TO ONE NOSTRIL TWICE DAILY)
     Route: 045
     Dates: start: 20240112

REACTIONS (2)
  - Product delivery mechanism issue [Unknown]
  - Intentional product misuse [Unknown]
